FAERS Safety Report 6025012-6 (Version None)
Quarter: 2008Q4

REPORT INFORMATION
  Report Type: 
  Country: None (occurrence: None)
  Receive Date: 20081224
  Receipt Date: 20081216
  Transmission Date: 20090506
  Serious: Yes (Other)
  Sender: FDA-Public Use
  Company Number: FABR-1000579

PATIENT
  Age: 23 Year
  Sex: Male
  Weight: 61 kg

DRUGS (2)
  1. FABRAZYME [Suspect]
     Indication: FABRY'S DISEASE
     Dosage: 60 MG, INTRAVENOUS
     Route: 042
     Dates: start: 20081128, end: 20081128
  2. CARBAMAZEPINE [Concomitant]

REACTIONS (2)
  - FLUSHING [None]
  - TREMOR [None]
